FAERS Safety Report 18445937 (Version 1)
Quarter: 2020Q4

REPORT INFORMATION
  Report Type: Report from Study
  Country: CH (occurrence: CH)
  Receive Date: 20201030
  Receipt Date: 20201030
  Transmission Date: 20210114
  Serious: Yes (Hospitalization)
  Sender: FDA-Public Use
  Company Number: CH-PFIZER INC-2020417118

PATIENT
  Age: 60 Year
  Sex: Male
  Weight: 99.5 kg

DRUGS (15)
  1. BACTRIM [Concomitant]
     Active Substance: SULFAMETHOXAZOLE\TRIMETHOPRIM
     Dosage: [SULFAMETHOXAZOLE 800MG]/[TRIMETHOPRIM 160MG] 3 IN 1 WEEK
     Route: 048
  2. NEULASTA [Concomitant]
     Active Substance: PEGFILGRASTIM
     Dosage: UNK
     Dates: start: 20200921
  3. NEXIUM [Concomitant]
     Active Substance: ESOMEPRAZOLE MAGNESIUM
     Dosage: UNK
     Route: 048
  4. ZYLORIC [Concomitant]
     Active Substance: ALLOPURINOL
     Dosage: 300 MG, D1-7
     Route: 048
  5. XARELTO [Concomitant]
     Active Substance: RIVAROXABAN
     Dosage: UNK
     Route: 048
  6. LAXIPEG [Concomitant]
     Dosage: UNK
     Route: 048
  7. ULTRACORTENOL [PREDNISOLONE ACETATE] [Concomitant]
     Dosage: UNK, 1X/DAY (1 IN 1D)
  8. CYTARABINE. [Suspect]
     Active Substance: CYTARABINE
     Indication: B-CELL LYMPHOMA
     Dosage: 4300 MG/24H, 1X/DAY
     Route: 042
     Dates: start: 20200917, end: 20200918
  9. RITUXIMAB. [Suspect]
     Active Substance: RITUXIMAB
     Indication: B-CELL LYMPHOMA
     Dosage: 800 MG, ONCE
     Route: 042
     Dates: start: 20200916, end: 20200916
  10. MAXIDEX [Concomitant]
     Active Substance: DEXAMETHASONE
     Dosage: UNK, 3X/DAY (3 IN 1D)
  11. VISCOTEARS [Concomitant]
     Active Substance: CARBOMER
     Dosage: UNK
  12. CISPLATIN. [Suspect]
     Active Substance: CISPLATIN
     Indication: B-CELL LYMPHOMA
     Dosage: 215 MG, ONCE, INJECTION
     Route: 042
     Dates: start: 20200916, end: 20200916
  13. DEXAMETHASONE. [Suspect]
     Active Substance: DEXAMETHASONE
     Indication: B-CELL LYMPHOMA
     Dosage: 40 MG/24H, 1X/DAY
     Route: 048
     Dates: start: 20200916, end: 20200919
  14. RIVAROXABAN [Concomitant]
     Active Substance: RIVAROXABAN
     Indication: ANTICOAGULANT THERAPY
     Dosage: UNK
     Route: 048
  15. VALTREX [Concomitant]
     Active Substance: VALACYCLOVIR HYDROCHLORIDE
     Dosage: 500 MG, 1 IN 1 D, 1X/DAY (ENTERIC COATED TABLET)
     Route: 048

REACTIONS (1)
  - Febrile neutropenia [Recovered/Resolved]

NARRATIVE: CASE EVENT DATE: 20200926
